FAERS Safety Report 6974912-9 (Version None)
Quarter: 2010Q3

REPORT INFORMATION
  Report Type: 
  Country: None (occurrence: None)
  Receive Date: 20100909
  Receipt Date: 20081219
  Transmission Date: 20110219
  Serious: No
  Sender: FDA-Public Use
  Company Number: US-WYE-H07378508

PATIENT
  Age: 98 Year
  Sex: Male

DRUGS (1)
  1. PROTONIX [Suspect]
     Dosage: 40 MG, FREQUENCY UNKNOWN

REACTIONS (1)
  - DRUG SCREEN FALSE POSITIVE [None]
